FAERS Safety Report 15242057 (Version 1)
Quarter: 2018Q3

REPORT INFORMATION
  Report Type: Spontaneous
  Country: US (occurrence: US)
  Receive Date: 20180806
  Receipt Date: 20180806
  Transmission Date: 20181010
  Serious: No
  Sender: FDA-Public Use
  Company Number: US-DRREDDYS-USA/USA/17/0094102

PATIENT
  Age: 62 Year
  Sex: Female
  Weight: 96 kg

DRUGS (1)
  1. AMLODIPINE AND ATORVASTATIN [Suspect]
     Active Substance: AMLODIPINE BESYLATE\ATORVASTATIN CALCIUM
     Indication: PRODUCT USED FOR UNKNOWN INDICATION
     Dosage: 10MG/40MG
     Route: 048

REACTIONS (3)
  - Product quality issue [Unknown]
  - Feeling abnormal [Unknown]
  - Drug dose omission [Unknown]

NARRATIVE: CASE EVENT DATE: 20171003
